FAERS Safety Report 16468715 (Version 1)
Quarter: 2019Q3

REPORT INFORMATION
  Report Type: Spontaneous
  Country: US (occurrence: US)
  Receive Date: 20190621
  Receipt Date: 20190621
  Transmission Date: 20191004
  Serious: Yes (Disabling)
  Sender: FDA-Public Use
  Company Number: None

PATIENT
  Age: 39 Year
  Sex: Female
  Weight: 51.3 kg

DRUGS (3)
  1. D-MANNOSE [Concomitant]
  2. PROBIOTICS [Concomitant]
     Active Substance: PROBIOTICS NOS
  3. NITROFURANTOIN MONOHYDRATE MACROCRYSTALS [Suspect]
     Active Substance: NITROFURANTOIN\NITROFURANTOIN MONOHYDRATE
     Indication: URINARY TRACT INFECTION
     Dosage: ?          QUANTITY:60 CAPSULE(S);?
     Route: 048
     Dates: start: 20190606, end: 20190615

REACTIONS (6)
  - Fatigue [None]
  - Dyspepsia [None]
  - Gastric disorder [None]
  - Gait disturbance [None]
  - Pain [None]
  - Nausea [None]

NARRATIVE: CASE EVENT DATE: 20190614
